FAERS Safety Report 8581856-8 (Version None)
Quarter: 2012Q3

REPORT INFORMATION
  Report Type: 
  Country: None (occurrence: None)
  Receive Date: 20120727
  Receipt Date: 20120713
  Transmission Date: 20120928
  Serious: Yes (Hospitalization)
  Sender: FDA-Public Use
  Company Number: JPI-P-022737

PATIENT
  Age: 41 Year
  Sex: Female

DRUGS (24)
  1. XYREM [Suspect]
     Indication: CATAPLEXY
     Dosage: 4.5 GM (2.25 GM,2 IN 1 D),ORAL ; 9 GM (4.5 GM,2 IN 1 D),ORAL
     Route: 048
     Dates: start: 20070913, end: 20070101
  2. XYREM [Suspect]
     Indication: CATAPLEXY
     Dosage: 4.5 GM (2.25 GM,2 IN 1 D),ORAL ; 9 GM (4.5 GM,2 IN 1 D),ORAL
     Route: 048
     Dates: start: 20071108
  3. TIZANIDINE HYDROCHLORIDE [Concomitant]
  4. PAROXETINE HCL [Concomitant]
  5. BUPROPION HCL [Concomitant]
  6. ASENAPINE [Suspect]
     Indication: PRODUCT USED FOR UNKNOWN INDICATION
     Dates: start: 20120101, end: 20120101
  7. CELECOXIB [Concomitant]
  8. BUSPIRONE HCL [Concomitant]
  9. CAMPHOR MENTHOL TOPICAL [Concomitant]
  10. BENZONATATE [Concomitant]
  11. MULTI-VITAMINS [Concomitant]
  12. HYDROMORPHONE HYDROCHLORIDE [Concomitant]
  13. LIDOCAINE HYDROCHLORIDE [Concomitant]
  14. MOMETASONE FUROATE [Concomitant]
  15. MOMETASONE FUROATE [Concomitant]
  16. CLONAZEPAM [Concomitant]
  17. DIHYDROERGOTAMINE MESYLATE [Concomitant]
  18. MONTELUKAST SODIUM [Concomitant]
  19. MOMETASONE FUROATE MONOHYDRATE [Concomitant]
  20. INSULIN (INSULIN) [Concomitant]
  21. FEXOFENADINE HCL [Concomitant]
  22. ONDANSETRON [Concomitant]
  23. CLINDAMYCIN [Concomitant]
  24. SPIRONOLACTONE [Concomitant]

REACTIONS (49)
  - IRRITABILITY [None]
  - GALACTORRHOEA [None]
  - MUSCLE SPASMS [None]
  - URINARY HESITATION [None]
  - INITIAL INSOMNIA [None]
  - BREAST NEOPLASM [None]
  - PSYCHOLOGICAL TRAUMA [None]
  - POOR QUALITY SLEEP [None]
  - DRUG ADMINISTRATION ERROR [None]
  - HYPOKALAEMIA [None]
  - NIGHT SWEATS [None]
  - PAIN IN JAW [None]
  - ENURESIS [None]
  - CONFUSIONAL STATE [None]
  - WRONG TECHNIQUE IN DRUG USAGE PROCESS [None]
  - DISSOCIATIVE IDENTITY DISORDER [None]
  - POST-TRAUMATIC STRESS DISORDER [None]
  - POLYCYSTIC OVARIES [None]
  - DRUG HYPERSENSITIVITY [None]
  - DYSGRAPHIA [None]
  - SLEEP APNOEA SYNDROME [None]
  - MIGRAINE [None]
  - ARTHROPATHY [None]
  - ARTHRALGIA [None]
  - AUTONOMIC NEUROPATHY [None]
  - AGITATION [None]
  - PSORIATIC ARTHROPATHY [None]
  - GLOMERULAR FILTRATION RATE DECREASED [None]
  - VITAMIN D DEFICIENCY [None]
  - MICTURITION URGENCY [None]
  - SPEECH DISORDER [None]
  - MENSTRUATION IRREGULAR [None]
  - HOT FLUSH [None]
  - LABILE BLOOD PRESSURE [None]
  - MIDDLE INSOMNIA [None]
  - BRADYCARDIA [None]
  - SPINAL COLUMN STENOSIS [None]
  - FAECAL INCONTINENCE [None]
  - SINUS TACHYCARDIA [None]
  - AUTONOMIC NERVOUS SYSTEM IMBALANCE [None]
  - HYPERHIDROSIS [None]
  - THERAPEUTIC RESPONSE DECREASED [None]
  - SUICIDAL IDEATION [None]
  - SYSTEMIC LUPUS ERYTHEMATOSUS [None]
  - RHEUMATOID ARTHRITIS [None]
  - CHEST PAIN [None]
  - MUSCLE TWITCHING [None]
  - PSYCHIATRIC SYMPTOM [None]
  - HYPOTENSION [None]
